FAERS Safety Report 4865618-0 (Version None)
Quarter: 2005Q4

REPORT INFORMATION
  Report Type: 
  Country: None (occurrence: None)
  Receive Date: 20051220
  Receipt Date: 20051208
  Transmission Date: 20060501
  Serious: Yes (Hospitalization, Other)
  Sender: FDA-Public Use
  Company Number: 2005166873

PATIENT
  Age: 77 Year
  Sex: Female
  Weight: 81.6475 kg

DRUGS (4)
  1. LYRICA [Suspect]
     Indication: NEURALGIA
     Dosage: 150 MG (75 MG, 2 IN 1 D), ORAL
     Route: 048
     Dates: start: 20051101
  2. TORADOL [Suspect]
     Indication: PAIN
     Dates: start: 20051101
  3. DILAUDID [Suspect]
     Indication: PAIN
     Dates: start: 20051101
  4. HYDROCODONE (HYRDOCODONE) [Concomitant]

REACTIONS (7)
  - CONVULSION [None]
  - FALL [None]
  - HIP FRACTURE [None]
  - HYPOAESTHESIA ORAL [None]
  - NAUSEA [None]
  - PAIN [None]
  - TONGUE DISORDER [None]
